FAERS Safety Report 4312860-3 (Version None)
Quarter: 2004Q1

REPORT INFORMATION
  Report Type: 
  Country: None (occurrence: None)
  Receive Date: 20040304
  Receipt Date: 20040204
  Transmission Date: 20041129
  Serious: Yes (Hospitalization)
  Sender: FDA-Public Use
  Company Number: 27721

PATIENT
  Age: 50 Year
  Sex: Male

DRUGS (3)
  1. CYCLOPENTOLATE HCL (CYCLOGYL 1%) [Suspect]
     Indication: RETINAL HAEMORRHAGE
     Dosage: OPHT
     Route: 047
     Dates: start: 20030729, end: 20030730
  2. DORZOLAMIDE/TIMOLOL [Concomitant]
  3. DEXAMETHASONE 0.1% SUSPENSION [Concomitant]

REACTIONS (6)
  - ASTHENIA [None]
  - CONDITION AGGRAVATED [None]
  - FATIGUE [None]
  - VENTRICULAR EXTRASYSTOLES [None]
  - VENTRICULAR FIBRILLATION [None]
  - VENTRICULAR TACHYCARDIA [None]
